FAERS Safety Report 5467433-6 (Version None)
Quarter: 2007Q3

REPORT INFORMATION
  Report Type: 
  Country: None (occurrence: None)
  Receive Date: 20070925
  Receipt Date: 20070913
  Transmission Date: 20080115
  Serious: Yes (Death)
  Sender: FDA-Public Use
  Company Number: DE-PFIZER INC-2007077298

PATIENT
  Age: 52 Year
  Sex: Male

DRUGS (1)
  1. SUTENT [Suspect]
     Route: 048
     Dates: start: 20070329, end: 20070731

REACTIONS (1)
  - PULMONARY EMBOLISM [None]
